FAERS Safety Report 18821548 (Version 2)
Quarter: 2021Q1

REPORT INFORMATION
  Report Type: Spontaneous
  Country: NO (occurrence: NO)
  Receive Date: 20210201
  Receipt Date: 20210217
  Transmission Date: 20210419
  Serious: Yes (Hospitalization, Other)
  Sender: FDA-Public Use
  Company Number: NO-PFIZER INC-2021082103

PATIENT
  Age: 29 Year
  Sex: Female

DRUGS (1)
  1. ZESSLY [Suspect]
     Active Substance: INFLIXIMAB
     Indication: CROHN^S DISEASE
     Dosage: 300 MG (PER 8 WEEKS)
     Route: 042
     Dates: start: 201911, end: 20201210

REACTIONS (2)
  - Maternal exposure during pregnancy [Unknown]
  - Listeriosis [Recovered/Resolved]

NARRATIVE: CASE EVENT DATE: 20201223
